FAERS Safety Report 4786923-2 (Version None)
Quarter: 2005Q3

REPORT INFORMATION
  Report Type: 
  Country: None (occurrence: None)
  Receive Date: 20050930
  Receipt Date: 20050921
  Transmission Date: 20060218
  Serious: Yes (Death)
  Sender: FDA-Public Use
  Company Number: HQWYE602522SEP05

PATIENT
  Age: 39 Year
  Sex: Male

DRUGS (4)
  1. EFFEXOR [Suspect]
     Dosage: UNKNOWN OVERDOSE AMOUNT, ORAL
     Route: 048
     Dates: start: 20040101, end: 20040101
  2. ATIVAN [Suspect]
     Dosage: UNKNOWN OVERDOSE AMOUNT, ORAL
     Route: 048
     Dates: start: 20040101, end: 20040101
  3. DIPEHNOXYLATE W/ATROPINE SULFATE (ATROPINE SULFATE/DIPHENOXYLATE) [Suspect]
     Dosage: UNKNOWN OVERDOSE AMOUNT, ORAL
     Route: 048
     Dates: start: 20040101, end: 20040101
  4. HYDROCODONE (HYDROCODONE) [Suspect]
     Dosage: UNKNOWN OVERDOSE AMOUNT, ORAL
     Route: 048

REACTIONS (6)
  - COMPLETED SUICIDE [None]
  - DEPRESSED LEVEL OF CONSCIOUSNESS [None]
  - INTENTIONAL MISUSE [None]
  - MIOSIS [None]
  - MULTIPLE DRUG OVERDOSE [None]
  - RESPIRATORY DEPRESSION [None]
